FAERS Safety Report 21132215 (Version 8)
Quarter: 2025Q3

REPORT INFORMATION
  Report Type: Report from Study
  Country: EU (occurrence: EU)
  Receive Date: 20220726
  Receipt Date: 20250714
  Transmission Date: 20251020
  Serious: No
  Sender: PFIZER
  Company Number: EU-PFM-2022-03429

PATIENT
  Age: 81 Year
  Sex: Female
  Weight: 78 kg

DRUGS (9)
  1. ENCORAFENIB [Suspect]
     Active Substance: ENCORAFENIB
     Indication: Malignant melanoma
     Dosage: 450 MG, QD (1/DAY)
     Route: 048
     Dates: start: 20211220
  2. BINIMETINIB [Suspect]
     Active Substance: BINIMETINIB
     Indication: Malignant melanoma
     Dosage: 45 MG, BID (2/DAY)
     Route: 048
     Dates: start: 20211220
  3. COMIRNATY [Concomitant]
     Indication: COVID-19 immunisation
     Route: 065
     Dates: start: 20210408, end: 20210408
  4. COMIRNATY [Concomitant]
     Route: 065
     Dates: start: 20210519, end: 20210519
  5. SITAGLIPTIN [Concomitant]
     Active Substance: SITAGLIPTIN
     Route: 065
     Dates: start: 202102
  6. LOSARTAN [Concomitant]
     Active Substance: LOSARTAN
     Route: 065
  7. ROSUVASTATIN [Concomitant]
     Active Substance: ROSUVASTATIN
     Route: 065
  8. AMLODIPINE [Concomitant]
     Active Substance: AMLODIPINE BESYLATE
     Route: 065
  9. NITRENDIPINE [Concomitant]
     Active Substance: NITRENDIPINE
     Route: 065

REACTIONS (7)
  - Erythema multiforme [Recovering/Resolving]
  - Hair texture abnormal [Not Recovered/Not Resolved]
  - Diarrhoea [Recovered/Resolved]
  - Dyspnoea [Not Recovered/Not Resolved]
  - Decreased appetite [Recovered/Resolved]
  - Vision blurred [Recovering/Resolving]
  - Myalgia [Recovered/Resolved]

NARRATIVE: CASE EVENT DATE: 20220101
